FAERS Safety Report 15853887 (Version 6)
Quarter: 2020Q2

REPORT INFORMATION
  Report Type: Report from Study
  Country: FR (occurrence: FR)
  Receive Date: 20190122
  Receipt Date: 20200413
  Transmission Date: 20200713
  Serious: Yes (Death, Hospitalization)
  Sender: FDA-Public Use
  Company Number: FR-BAYER-2019-014052

PATIENT
  Age: 61 Year
  Sex: Male
  Weight: 73 kg

DRUGS (8)
  1. INEXIUM [ESOMEPRAZOLE SODIUM] [Concomitant]
     Active Substance: ESOMEPRAZOLE SODIUM
     Indication: ULCER
     Dosage: 80 MG, QD
     Dates: start: 20190109
  2. REGORAFENIB. [Suspect]
     Active Substance: REGORAFENIB
     Indication: METASTASES TO LIVER
  3. AVELUMAB [Suspect]
     Active Substance: AVELUMAB
     Indication: CHOLANGIOCARCINOMA
     Dosage: 680 MG, QD
     Route: 042
     Dates: start: 20181227, end: 20181227
  4. AMOXICILLINA [Concomitant]
     Active Substance: AMOXICILLIN
     Indication: INFECTION PROPHYLAXIS
     Dosage: UNK
     Route: 048
     Dates: start: 2019
  5. SIMETHICONE (DIMETHICONE) [Concomitant]
     Active Substance: DIMETHICONE
  6. REGORAFENIB. [Suspect]
     Active Substance: REGORAFENIB
     Indication: CHOLANGIOCARCINOMA
     Dosage: 160 MG, QD
     Route: 048
     Dates: start: 20181213, end: 20190103
  7. METEOSPASMYL (ALVERINE CITRATE\DIMETHICONE) [Concomitant]
     Active Substance: ALVERINE CITRATE\DIMETHICONE
     Dosage: 60/300 MG
     Dates: start: 20181220
  8. AVELUMAB [Suspect]
     Active Substance: AVELUMAB
     Indication: METASTASES TO LIVER
     Dosage: 780 MG, QD
     Route: 042
     Dates: start: 20190125, end: 20190125

REACTIONS (2)
  - Oesophagitis ulcerative [Recovered/Resolved]
  - General physical health deterioration [Not Recovered/Not Resolved]

NARRATIVE: CASE EVENT DATE: 20190108
